FAERS Safety Report 16570649 (Version 1)
Quarter: 2019Q3

REPORT INFORMATION
  Report Type: Spontaneous
  Country: BE (occurrence: BE)
  Receive Date: 20190715
  Receipt Date: 20190715
  Transmission Date: 20191004
  Serious: Yes (Life-Threatening, Hospitalization)
  Sender: FDA-Public Use
  Company Number: BE-ROCHE-2352922

PATIENT
  Age: 20 Year
  Sex: Male

DRUGS (3)
  1. LORAZEPAM. [Concomitant]
     Active Substance: LORAZEPAM
  2. LEPONEX [Suspect]
     Active Substance: CLOZAPINE
     Indication: PRODUCT USED FOR UNKNOWN INDICATION
     Dosage: IT WAS ASSUMED THAT ON-SITE 100 MG CLOZAPINE TABLETS HAVE BEEN SOLD AS ECSTASY AND THAT THE PATIENT
     Route: 048
  3. DIAZEPAM. [Suspect]
     Active Substance: DIAZEPAM
     Indication: AGITATION
     Route: 042

REACTIONS (3)
  - Bradycardia [Recovered/Resolved]
  - Oxygen saturation decreased [Recovered/Resolved]
  - Obstructive airways disorder [Recovered/Resolved]
